FAERS Safety Report 6663093-7 (Version None)
Quarter: 2010Q1

REPORT INFORMATION
  Report Type: 
  Country: None (occurrence: None)
  Receive Date: 20100323
  Receipt Date: 20091207
  Transmission Date: 20100710
  Serious: No
  Sender: FDA-Public Use
  Company Number: 091209-0001212

PATIENT
  Age: 14 Year
  Sex: Female

DRUGS (2)
  1. SABRIL [Suspect]
     Indication: CONVULSION
     Dosage: 250 MG; BID; PO
     Route: 048
  2. TRILEPTAL [Concomitant]

REACTIONS (3)
  - AGITATION [None]
  - CONVULSION [None]
  - DRUG INEFFECTIVE [None]
